FAERS Safety Report 24669940 (Version 1)
Quarter: 2024Q4

REPORT INFORMATION
  Report Type: Spontaneous
  Country: US (occurrence: None)
  Receive Date: 20241126
  Receipt Date: 20241126
  Transmission Date: 20250115
  Serious: No
  Sender: Public
  Company Number: None

PATIENT
  Age: 54 Year
  Sex: 0

DRUGS (1)
  1. COSENTYX [Suspect]
     Active Substance: SECUKINUMAB
     Dosage: OTHER FREQUENCY : EVERY 4 WEEKS;?
     Route: 058

REACTIONS (2)
  - Pruritus [None]
  - Skin disorder [None]

NARRATIVE: CASE EVENT DATE: 20241126
